FAERS Safety Report 4742365-7 (Version None)
Quarter: 2005Q3

REPORT INFORMATION
  Report Type: 
  Country: None (occurrence: None)
  Receive Date: 20050810
  Receipt Date: 20050810
  Transmission Date: 20060218
  Serious: Yes (Hospitalization)
  Sender: FDA-Public Use
  Company Number: None

PATIENT
  Age: 63 Year
  Sex: Male
  Weight: 77.1115 kg

DRUGS (9)
  1. ASPIRIN [Suspect]
     Indication: ARTERIAL DISORDER
     Dosage: PTA
  2. CLOPIDOGREL [Suspect]
     Indication: ARTERIAL DISORDER
     Dosage: PTA
  3. . [Concomitant]
  4. . [Concomitant]
  5. . [Concomitant]
  6. . [Concomitant]
  7. . [Concomitant]
  8. . [Concomitant]
  9. . [Concomitant]

REACTIONS (1)
  - HAEMATURIA [None]
